FAERS Safety Report 4512587-9 (Version None)
Quarter: 2004Q4

REPORT INFORMATION
  Report Type: 
  Country: None (occurrence: None)
  Receive Date: 20041124
  Receipt Date: 20041108
  Transmission Date: 20050328
  Serious: Yes (Other)
  Sender: FDA-Public Use
  Company Number: US_0411107898

PATIENT
  Age: 46 Year
  Sex: Male

DRUGS (4)
  1. PROZAC [Suspect]
     Indication: DEPRESSION
     Dosage: 40 MG
  2. RIBAVIRIN [Concomitant]
  3. PEGINTERFERON ALFA-2B [Concomitant]
  4. ADVIL [Concomitant]

REACTIONS (3)
  - HOMICIDAL IDEATION [None]
  - MENTAL STATUS CHANGES [None]
  - PSYCHOTIC DISORDER [None]
